FAERS Safety Report 8742224 (Version 2)
Quarter: 2012Q4

REPORT INFORMATION
  Report Type: 
  Country: TH (occurrence: TH)
  Receive Date: 20120824
  Receipt Date: 20120914
  Transmission Date: 20130627
  Serious: Yes (Death)
  Sender: FDA-Public Use
  Company Number: PHHY2012TH072683

PATIENT
  Sex: Female

DRUGS (1)
  1. GLIVEC [Suspect]
     Indication: GASTROINTESTINAL STROMAL TUMOUR
     Dosage: 400 mg, UNK

REACTIONS (2)
  - Death [Fatal]
  - No therapeutic response [Unknown]
